FAERS Safety Report 24012928 (Version 1)
Quarter: 2024Q2

REPORT INFORMATION
  Report Type: Report from Study
  Country: CA (occurrence: CA)
  Receive Date: 20240626
  Receipt Date: 20240626
  Transmission Date: 20240716
  Serious: Yes (Hospitalization, Other)
  Sender: FDA-Public Use
  Company Number: CA-CELLTRION INC.-2024CA015082

PATIENT

DRUGS (5)
  1. BEVACIZUMAB [Suspect]
     Active Substance: BEVACIZUMAB
     Indication: Hereditary haemorrhagic telangiectasia
     Dosage: 320.0 MILLIGRAM, 1 EVERY 2 WEEKS
     Route: 042
  2. BEVACIZUMAB [Suspect]
     Active Substance: BEVACIZUMAB
     Indication: Haemorrhage
     Dosage: 320.0 MILLIGRAM, 1 EVERY 1 MONTHS
     Route: 042
  3. BEVACIZUMAB [Suspect]
     Active Substance: BEVACIZUMAB
     Indication: Anaemia
  4. IRON [Concomitant]
     Active Substance: IRON
  5. WHOLE BLOOD [Concomitant]
     Active Substance: WHOLE BLOOD

REACTIONS (7)
  - Malaise [Unknown]
  - Tooth disorder [Unknown]
  - Asthenia [Unknown]
  - COVID-19 [Unknown]
  - Epistaxis [Unknown]
  - Off label use [Unknown]
  - Intentional product use issue [Unknown]
